FAERS Safety Report 8081153-3 (Version None)
Quarter: 2012Q1

REPORT INFORMATION
  Report Type: 
  Country: None (occurrence: None)
  Receive Date: 20120130
  Receipt Date: 20120126
  Transmission Date: 20120608
  Serious: Yes (Life-Threatening, Hospitalization, Other)
  Sender: FDA-Public Use
  Company Number: US-VIIV HEALTHCARE LIMITED-A0963513A

PATIENT
  Age: 44 Year
  Sex: Male

DRUGS (7)
  1. NORVIR [Concomitant]
  2. PRAVASTATIN [Concomitant]
  3. DIDANOSINE [Concomitant]
  4. GEMFIBROZIL [Concomitant]
  5. REYATAZ [Concomitant]
  6. ZIAGEN [Suspect]
     Indication: HIV INFECTION
     Dosage: 600MG PER DAY
     Route: 048
     Dates: start: 20050101
  7. PRILOSEC [Concomitant]

REACTIONS (3)
  - CHEST PAIN [None]
  - CHEST DISCOMFORT [None]
  - CORONARY ARTERY OCCLUSION [None]
